FAERS Safety Report 5627797-7 (Version None)
Quarter: 2008Q1

REPORT INFORMATION
  Report Type: 
  Country: None (occurrence: None)
  Receive Date: 20080215
  Receipt Date: 20080213
  Transmission Date: 20080703
  Serious: Yes (Hospitalization)
  Sender: FDA-Public Use
  Company Number: B0507739A

PATIENT
  Sex: Male

DRUGS (5)
  1. LAMIVUDINE [Suspect]
     Dates: start: 20071216
  2. RALTEGRAVIR [Suspect]
     Dosage: 400MG PER DAY
     Route: 048
     Dates: start: 20071216
  3. CYCLOPHOSPHAMIDE [Suspect]
     Dates: start: 20071216, end: 20080104
  4. DARUNAVIR [Suspect]
     Dates: start: 20071216, end: 20080104
  5. MARAVIROC [Suspect]
     Dates: start: 20071216

REACTIONS (1)
  - STEVENS-JOHNSON SYNDROME [None]
